FAERS Safety Report 9882628 (Version 2)
Quarter: 2014Q1

REPORT INFORMATION
  Report Type: Report from Study
  Country: CO (occurrence: CO)
  Receive Date: 20140207
  Receipt Date: 20140307
  Transmission Date: 20141002
  Serious: Yes (Other)
  Sender: FDA-Public Use
  Company Number: CO-ABBVIE-14P-036-1198798-00

PATIENT
  Age: 49 Year
  Sex: Male
  Weight: 87 kg

DRUGS (6)
  1. HUMIRA [Suspect]
     Indication: ANKYLOSING SPONDYLITIS
     Route: 058
     Dates: start: 20120914, end: 20140110
  2. HUMIRA [Suspect]
     Dates: start: 20140209
  3. SULFASALAZINE [Concomitant]
     Indication: PRODUCT USED FOR UNKNOWN INDICATION
     Dosage: 2 UNKNOWN DAILY
  4. THIAMINE [Concomitant]
     Indication: PRODUCT USED FOR UNKNOWN INDICATION
  5. CALCIUM [Concomitant]
     Indication: PRODUCT USED FOR UNKNOWN INDICATION
     Dosage: 1 UNKNOWN DAILY
  6. ACETAMINOPHEN [Concomitant]
     Indication: PRODUCT USED FOR UNKNOWN INDICATION

REACTIONS (1)
  - Meniscus injury [Recovering/Resolving]
